FAERS Safety Report 4665465-9 (Version None)
Quarter: 2005Q2

REPORT INFORMATION
  Report Type: 
  Country: None (occurrence: None)
  Receive Date: 20050518
  Receipt Date: 20050511
  Transmission Date: 20051028
  Serious: Yes (Disabling, Other)
  Sender: FDA-Public Use
  Company Number: 2005AP000418

PATIENT
  Age: 46 Year
  Sex: Male

DRUGS (1)
  1. APO-OXYBUTYNIN (OXYBUTYNIN HYDROCHLORIDE) (5 MG) [Suspect]
     Indication: INCONTINENCE
     Dosage: 5 MG BID PO
     Route: 048

REACTIONS (2)
  - GASTROOESOPHAGEAL REFLUX DISEASE [None]
  - MACULAR DEGENERATION [None]
